FAERS Safety Report 4653672-0 (Version None)
Quarter: 2005Q2

REPORT INFORMATION
  Report Type: 
  Country: None (occurrence: None)
  Receive Date: 20050505
  Receipt Date: 20050425
  Transmission Date: 20051028
  Serious: Yes (Death)
  Sender: FDA-Public Use
  Company Number: US-JNJFOC-20050406305

PATIENT
  Sex: Female

DRUGS (2)
  1. DURAGESIC-100 [Suspect]
     Route: 062
     Dates: end: 20031206
  2. DURAGESIC-100 [Suspect]
     Dosage: USING FENTANYL-TTS FOR SEVERAL YEARS
     Route: 062
     Dates: end: 20031206

REACTIONS (2)
  - COLITIS [None]
  - DEATH [None]
